FAERS Safety Report 7399656-3 (Version None)
Quarter: 2011Q2

REPORT INFORMATION
  Report Type: 
  Country: None (occurrence: None)
  Receive Date: 20110407
  Receipt Date: 20100816
  Transmission Date: 20111010
  Serious: No
  Sender: FDA-Public Use
  Company Number: US-KINGPHARMUSA00001-K200700689

PATIENT
  Sex: Male
  Weight: 60.771 kg

DRUGS (3)
  1. ANALGESICS [Concomitant]
     Indication: PAIN
     Dosage: UNK
  2. SKELAXIN [Suspect]
     Indication: MUSCLE STRAIN
  3. SKELAXIN [Suspect]
     Indication: NECK INJURY
     Dosage: 800 MG, BID
     Route: 048
     Dates: start: 20061101, end: 20060101

REACTIONS (17)
  - RASH PRURITIC [None]
  - CARDIAC DISORDER [None]
  - BREAST PAIN [None]
  - OEDEMA PERIPHERAL [None]
  - WOUND [None]
  - SKIN DISCOLOURATION [None]
  - MUSCLE SPASMS [None]
  - BALANCE DISORDER [None]
  - PRURITUS [None]
  - PAIN IN EXTREMITY [None]
  - BURNING SENSATION [None]
  - WEIGHT DECREASED [None]
  - CONSTIPATION [None]
  - SKIN EXFOLIATION [None]
  - NECK PAIN [None]
  - DECREASED APPETITE [None]
  - MUSCULAR WEAKNESS [None]
